FAERS Safety Report 4471712-9 (Version None)
Quarter: 2004Q4

REPORT INFORMATION
  Report Type: 
  Country: None (occurrence: None)
  Receive Date: 20041006
  Receipt Date: 20040927
  Transmission Date: 20050328
  Serious: Yes (Death)
  Sender: FDA-Public Use
  Company Number: 2004US001144

PATIENT
  Age: 50 Year
  Sex: Male

DRUGS (1)
  1. PROGRAF [Suspect]
     Indication: STEM CELL TRANSPLANT

REACTIONS (5)
  - COMA [None]
  - ENCEPHALITIS VIRAL [None]
  - NEUROTOXICITY [None]
  - RENAL FAILURE [None]
  - WEST NILE VIRAL INFECTION [None]
